FAERS Safety Report 14441107 (Version 2)
Quarter: 2018Q2

REPORT INFORMATION
  Report Type: Report from Study
  Country: CA (occurrence: CA)
  Receive Date: 20180125
  Receipt Date: 20180625
  Transmission Date: 20180711
  Serious: Yes (Death, Hospitalization, Other)
  Sender: FDA-Public Use
  Company Number: CA-TOLMAR, INC.-2018CA000781

PATIENT

DRUGS (1)
  1. ELIGARD [Suspect]
     Active Substance: LEUPROLIDE ACETATE
     Indication: PROSTATE CANCER
     Dosage: 45 MG, EVERY 6 MONTHS
     Route: 058
     Dates: start: 20170218, end: 20180126

REACTIONS (6)
  - Pyrexia [Recovering/Resolving]
  - Hip fracture [Not Recovered/Not Resolved]
  - Palliative care [Unknown]
  - Death [Fatal]
  - Fall [Not Recovered/Not Resolved]
  - Confusional state [Recovering/Resolving]

NARRATIVE: CASE EVENT DATE: 20180116
